FAERS Safety Report 20524611 (Version 1)
Quarter: 2022Q1

REPORT INFORMATION
  Report Type: Spontaneous
  Country: OM (occurrence: OM)
  Receive Date: 20220228
  Receipt Date: 20220228
  Transmission Date: 20220423
  Serious: Yes (Life-Threatening, Hospitalization, Other)
  Sender: FDA-Public Use
  Company Number: None

PATIENT
  Age: 38 Year
  Sex: Male

DRUGS (5)
  1. MYCOPHENOLATE MOFETIL [Suspect]
     Active Substance: MYCOPHENOLATE MOFETIL
     Indication: Renal transplant
     Dosage: 2000 MILLIGRAM/DAY
     Route: 065
     Dates: start: 2017
  2. PREDNISOLONE [Suspect]
     Active Substance: PREDNISOLONE
     Indication: Renal transplant
     Dosage: 5 MILLIGRAM/DAY
     Route: 065
     Dates: start: 2017
  3. CYCLOSPORINE [Suspect]
     Active Substance: CYCLOSPORINE
     Indication: Renal transplant
     Dosage: 300 MILLIGRAM/DAY
     Route: 065
     Dates: start: 2017
  4. INSULIN NOS [Concomitant]
     Active Substance: INSULIN NOS
     Indication: Type 2 diabetes mellitus
     Dosage: 26 INTERNATIONAL UNIT/DAY
     Route: 065
  5. LANTUS [Concomitant]
     Active Substance: INSULIN GLARGINE
     Indication: Type 2 diabetes mellitus
     Dosage: 36 INTERNATIONAL UNIT/DAY
     Route: 065

REACTIONS (8)
  - Status epilepticus [Recovered/Resolved]
  - Encephalopathy [Recovered/Resolved]
  - Renal impairment [Recovered/Resolved]
  - Microangiopathy [Recovered/Resolved]
  - Upper respiratory tract infection [Recovered/Resolved]
  - West Nile viral infection [Recovered/Resolved]
  - Listeriosis [Unknown]
  - Paresis [Recovered/Resolved]

NARRATIVE: CASE EVENT DATE: 20180101
